FAERS Safety Report 6269654-1 (Version None)
Quarter: 2009Q3

REPORT INFORMATION
  Report Type: 
  Country: None (occurrence: None)
  Receive Date: 20090714
  Receipt Date: 20090625
  Transmission Date: 20100115
  Serious: Yes (Death)
  Sender: FDA-Public Use
  Company Number: 2009-0013

PATIENT
  Age: 36 Year
  Sex: Male

DRUGS (5)
  1. CITALOPRAM HYDROBROMIDE [Suspect]
     Indication: DEPRESSION
  2. CITALOPRAM HYDROBROMIDE [Suspect]
     Indication: PAIN
  3. TRAMADOL HCL [Concomitant]
  4. CANNABIS [Concomitant]
  5. AMPHETAMINES [Concomitant]

REACTIONS (6)
  - ACCIDENTAL DEATH [None]
  - COMA [None]
  - CORONARY ARTERY STENOSIS [None]
  - DRUG INTERACTION [None]
  - DRUG TOXICITY [None]
  - LIVER DISORDER [None]
